FAERS Safety Report 24213399 (Version 3)
Quarter: 2024Q4

REPORT INFORMATION
  Report Type: Spontaneous
  Country: US (occurrence: US)
  Receive Date: 20240815
  Receipt Date: 20241121
  Transmission Date: 20250115
  Serious: Yes (Death, Other)
  Sender: PFIZER
  Company Number: US-PFIZER INC-202400236007

PATIENT
  Age: 25 Year
  Sex: Male

DRUGS (2)
  1. FENTANYL CITRATE [Suspect]
     Active Substance: FENTANYL CITRATE
     Dosage: UNK
  2. BROMAZOLAM [Suspect]
     Active Substance: BROMAZOLAM
     Dosage: UNK

REACTIONS (1)
  - Toxicity to various agents [Fatal]
